FAERS Safety Report 6196592-5 (Version None)
Quarter: 2009Q2

REPORT INFORMATION
  Report Type: 
  Country: None (occurrence: None)
  Receive Date: 20090520
  Receipt Date: 20090515
  Transmission Date: 20091009
  Serious: Yes (Life-Threatening)
  Sender: FDA-Public Use
  Company Number: JP-BAYER-200911085BYL

PATIENT
  Age: 85 Year
  Sex: Male
  Weight: 48 kg

DRUGS (1)
  1. NEXAVAR [Suspect]
     Indication: RENAL CELL CARCINOMA STAGE IV
     Dosage: UNIT DOSE: 200 MG
     Route: 048
     Dates: start: 20090316, end: 20090404

REACTIONS (2)
  - PNEUMONIA ASPIRATION [None]
  - PYREXIA [None]
